FAERS Safety Report 24715541 (Version 2)
Quarter: 2024Q4

REPORT INFORMATION
  Report Type: Report from Study
  Country: IE (occurrence: IE)
  Receive Date: 20241210
  Receipt Date: 20241225
  Transmission Date: 20250114
  Serious: Yes (Other)
  Sender: ROCHE
  Company Number: IE-ROCHE-10000123229

PATIENT
  Sex: Male

DRUGS (1)
  1. TOCILIZUMAB [Suspect]
     Active Substance: TOCILIZUMAB
     Indication: Product used for unknown indication
     Route: 058
     Dates: start: 20241031

REACTIONS (8)
  - Body modification [Recovered/Resolved]
  - Wrong technique in device usage process [Unknown]
  - Limb discomfort [Recovered/Resolved]
  - Musculoskeletal stiffness [Recovered/Resolved]
  - Pain [Recovered/Resolved]
  - Dyspepsia [Recovered/Resolved]
  - Arthralgia [Recovered/Resolved]
  - Joint stiffness [Recovered/Resolved]
